FAERS Safety Report 10389142 (Version 2)
Quarter: 2014Q3

REPORT INFORMATION
  Report Type: Spontaneous
  Country: JP (occurrence: JP)
  Receive Date: 20140817
  Receipt Date: 20140817
  Transmission Date: 20150326
  Serious: Yes (Other)
  Sender: FDA-Public Use
  Company Number: PHHY2012JP069019

PATIENT
  Age: 22 Year
  Sex: Female

DRUGS (7)
  1. GASTER [Concomitant]
     Active Substance: FAMOTIDINE
     Dosage: UNK UKN, UNK
     Route: 048
  2. TASIGNA [Suspect]
     Active Substance: NILOTINIB
     Dosage: 400 MG, (400 MG X3, DRUG OFF 1 DAY)
  3. TASIGNA [Suspect]
     Active Substance: NILOTINIB
     Dosage: 200 MG, (200 MG SIGLE, DRUG OFF)
  4. TASIGNA [Suspect]
     Active Substance: NILOTINIB
     Dosage: 150 MG, (150MG X3, DRUG OFF 2 DAYS)
  5. SELBEX [Concomitant]
     Active Substance: TEPRENONE
     Dosage: UNK UKN, UNK
     Route: 048
  6. TASIGNA [Suspect]
     Active Substance: NILOTINIB
     Indication: CHRONIC MYELOID LEUKAEMIA
     Route: 048
     Dates: start: 20120618
  7. TASIGNA [Suspect]
     Active Substance: NILOTINIB
     Dosage: 600 MG, QD

REACTIONS (7)
  - Abdominal distension [Unknown]
  - White blood cell count decreased [Not Recovered/Not Resolved]
  - White blood cell count increased [Not Recovered/Not Resolved]
  - Abdominal pain [Unknown]
  - Pancytopenia [Recovering/Resolving]
  - Platelet count decreased [Not Recovered/Not Resolved]
  - Haemoglobin decreased [Unknown]

NARRATIVE: CASE EVENT DATE: 20120713
